FAERS Safety Report 7501174-6 (Version None)
Quarter: 2011Q2

REPORT INFORMATION
  Report Type: 
  Country: None (occurrence: None)
  Receive Date: 20110524
  Receipt Date: 20100708
  Transmission Date: 20111010
  Serious: No
  Sender: FDA-Public Use
  Company Number: US-NOVEN-ALL1-2010-03407

PATIENT

DRUGS (5)
  1. ALLEGRA [Concomitant]
     Dosage: 60 MG, 2X/DAY:BID
     Route: 048
  2. DAYTRANA [Suspect]
     Dosage: UNK MG, 1X/DAY:QD
     Route: 062
     Dates: start: 20080101, end: 20100604
  3. RITALIN [Concomitant]
     Dosage: 5 MG, 1X/DAY:QD
     Route: 048
     Dates: start: 20070101
  4. FLOVENT [Concomitant]
     Dosage: 110 UG, 1X/DAY:QD
     Route: 055
  5. RITALIN [Concomitant]
     Dosage: 10 MG, 1X/DAY:QD
     Route: 048

REACTIONS (1)
  - HEADACHE [None]
